FAERS Safety Report 5862340-9 (Version None)
Quarter: 2008Q3

REPORT INFORMATION
  Report Type: 
  Country: None (occurrence: None)
  Receive Date: 20080828
  Receipt Date: 20080820
  Transmission Date: 20090109
  Serious: Yes (Hospitalization, Other)
  Sender: FDA-Public Use
  Company Number: GB-JNJFOC-20080804677

PATIENT
  Age: 43 Year
  Sex: Female
  Weight: 39 kg

DRUGS (3)
  1. REMICADE [Suspect]
     Dosage: WEEK 6
     Route: 042
  2. REMICADE [Suspect]
     Dosage: WEEK 2
     Route: 042
  3. REMICADE [Suspect]
     Indication: CROHN'S DISEASE
     Dosage: WEEK 0
     Route: 042

REACTIONS (3)
  - ABDOMINAL PAIN [None]
  - LIVER ABSCESS [None]
  - VOMITING [None]
